FAERS Safety Report 16182114 (Version 1)
Quarter: 2019Q2

REPORT INFORMATION
  Report Type: Report from Study
  Country: FR (occurrence: FR)
  Receive Date: 20190411
  Receipt Date: 20190411
  Transmission Date: 20190711
  Serious: Yes (Hospitalization, Other)
  Sender: FDA-Public Use
  Company Number: FR-BRISTOL-MYERS SQUIBB COMPANY-BMS-2019-021509

PATIENT
  Age: 21 Year
  Sex: Male
  Weight: 78 kg

DRUGS (2)
  1. NIVOLUMAB [Suspect]
     Active Substance: NIVOLUMAB
     Indication: RENAL CANCER METASTATIC
     Dosage: 1 DF, UNK
     Route: 042
     Dates: start: 20190117
  2. IPILIMUMAB [Suspect]
     Active Substance: IPILIMUMAB
     Indication: RENAL CANCER METASTATIC
     Dosage: 1 DF, UNK
     Route: 042
     Dates: start: 20190117

REACTIONS (3)
  - Hyperglycaemia [Recovered/Resolved with Sequelae]
  - Diabetes mellitus [Recovered/Resolved with Sequelae]
  - Thyroid disorder [Recovered/Resolved with Sequelae]

NARRATIVE: CASE EVENT DATE: 20190226
